FAERS Safety Report 6456212-9 (Version None)
Quarter: 2009Q4

REPORT INFORMATION
  Report Type: 
  Country: None (occurrence: None)
  Receive Date: 20091125
  Receipt Date: 20091112
  Transmission Date: 20100525
  Serious: Yes (Other)
  Sender: FDA-Public Use
  Company Number: US-ELI_LILLY_AND_COMPANY-US200908001049

PATIENT
  Sex: Female

DRUGS (5)
  1. FORTEO [Suspect]
     Dates: start: 20071101, end: 20090803
  2. CALCIUM                                 /N/A/ [Concomitant]
     Dosage: 1800 MG, DAILY (1/D)
  3. VITAMIN D [Concomitant]
     Dosage: 400 IU, 2/D
  4. PLAVIX [Concomitant]
     Dosage: 1/2 TABLET
  5. BABY ASPIRIN [Concomitant]
     Dosage: 81 MG, UNK

REACTIONS (3)
  - ATRIAL SEPTAL DEFECT [None]
  - BLOOD ALKALINE PHOSPHATASE INCREASED [None]
  - TRANSIENT ISCHAEMIC ATTACK [None]
